FAERS Safety Report 7440019-X (Version None)
Quarter: 2011Q2

REPORT INFORMATION
  Report Type: 
  Country: None (occurrence: None)
  Receive Date: 20110427
  Receipt Date: 20110415
  Transmission Date: 20111010
  Serious: Yes (Hospitalization)
  Sender: FDA-Public Use
  Company Number: PHHY2011TW20905

PATIENT
  Sex: Female

DRUGS (1)
  1. GLEEVEC [Suspect]
     Dosage: 400 MG, UNK
     Route: 048
     Dates: start: 20090330, end: 20110131

REACTIONS (4)
  - CARDIAC DISORDER [None]
  - TREMOR [None]
  - HYPERTENSION [None]
  - CARDIAC FUNCTION TEST ABNORMAL [None]
